FAERS Safety Report 5403001-X (Version None)
Quarter: 2007Q3

REPORT INFORMATION
  Report Type: 
  Country: None (occurrence: None)
  Receive Date: 20070718
  Receipt Date: 20061229
  Transmission Date: 20080115
  Serious: Yes (Hospitalization, Other)
  Sender: FDA-Public Use
  Company Number: 2006110954

PATIENT
  Age: 71 Year
  Sex: Female
  Weight: 46.3 kg

DRUGS (2)
  1. CELEBREX [Suspect]
     Indication: ARTHRITIS
     Dosage: 100 MG (100 MG,1 IN 1 D)
     Dates: start: 19990629
  2. CELEBREX [Suspect]
     Indication: PAIN MANAGEMENT
     Dosage: 100 MG (100 MG,1 IN 1 D)
     Dates: start: 19990629

REACTIONS (2)
  - ANXIETY [None]
  - CEREBROVASCULAR ACCIDENT [None]
